FAERS Safety Report 14618882 (Version 1)
Quarter: 2018Q1

REPORT INFORMATION
  Report Type: Spontaneous
  Country: DE (occurrence: DE)
  Receive Date: 20180309
  Receipt Date: 20180309
  Transmission Date: 20180509
  Serious: Yes (Other)
  Sender: FDA-Public Use
  Company Number: DE-PFIZER INC-2018096921

PATIENT
  Age: 50 Year
  Sex: Male

DRUGS (3)
  1. DOXYCYCLINE HYCLATE. [Suspect]
     Active Substance: DOXYCYCLINE HYCLATE
     Dosage: UNK, ONCE A DAY
     Route: 048
  2. MAGNESIUM 250 MG ALDI [Interacting]
     Active Substance: MINERALS\VITAMINS
     Dosage: UNK
     Route: 048
  3. PHENPRO.-RATIOPHARM 3 MG TABLETTEN [Interacting]
     Active Substance: PHENPROCOUMON
     Dosage: UNK (INTAKE ABOUT 8 YEARS)
     Route: 048
     Dates: start: 20090101

REACTIONS (5)
  - International normalised ratio increased [Unknown]
  - Psoriasis [Unknown]
  - Rheumatic disorder [Unknown]
  - Drug interaction [Unknown]
  - Muscle spasms [Unknown]
